FAERS Safety Report 8891298 (Version 2)
Quarter: 2012Q4

REPORT INFORMATION
  Report Type: 
  Country: DE (occurrence: DE)
  Receive Date: 20121107
  Receipt Date: 20121128
  Transmission Date: 20130627
  Serious: Yes (Other)
  Sender: FDA-Public Use
  Company Number: DE-AMGEN-DEUSP2012069830

PATIENT
  Age: 62 Year
  Sex: Female

DRUGS (11)
  1. XGEVA [Suspect]
     Indication: METASTASES TO BONE
     Dosage: 120 mg, q4wk
     Route: 058
     Dates: start: 201111
  2. FULVESTRANT [Concomitant]
     Dosage: UNK
     Dates: start: 201111, end: 20120503
  3. FASLODEX                           /01285001/ [Concomitant]
     Dosage: 500 mg, q4wk
     Route: 030
     Dates: start: 201206
  4. EVEROLIMUS [Concomitant]
     Dosage: UNK
     Dates: start: 201210
  5. TAMOXIFEN [Concomitant]
     Dosage: UNK
     Dates: start: 201210
  6. LOZAR [Concomitant]
     Dosage: UNK
     Dates: start: 2005
  7. MOXONIDIN [Concomitant]
     Dosage: UNK
     Dates: start: 2005
  8. THYRONAJOD [Concomitant]
     Dosage: UNK
     Dates: start: 2005
  9. VOLTAREN                           /00372301/ [Concomitant]
     Dosage: UNK
  10. ASCO TOP [Concomitant]
     Dosage: UNK
  11. ZOP [Concomitant]
     Dosage: UNK UNK, prn

REACTIONS (6)
  - Metastases to spine [Unknown]
  - Malignant neoplasm progression [Unknown]
  - Dermatitis allergic [Recovered/Resolved]
  - Headache [Recovered/Resolved]
  - Chills [Recovered/Resolved]
  - Back pain [Unknown]
